FAERS Safety Report 5632840-5 (Version None)
Quarter: 2008Q1

REPORT INFORMATION
  Report Type: 
  Country: None (occurrence: None)
  Receive Date: 20080221
  Receipt Date: 20080129
  Transmission Date: 20080703
  Serious: No
  Sender: FDA-Public Use
  Company Number: US-BAYER-200811529NA

PATIENT
  Age: 53 Year
  Sex: Male
  Weight: 86 kg

DRUGS (9)
  1. CAMPATH [Suspect]
     Indication: CENTRAL NERVOUS SYSTEM LEUKAEMIA
     Dosage: TOTAL DAILY DOSE: 20 MG
     Route: 042
     Dates: start: 20071206, end: 20071206
  2. CAMPATH [Suspect]
     Dosage: TOTAL DAILY DOSE: 20 MG
     Route: 042
     Dates: start: 20071212, end: 20071215
  3. CLOFARABINE [Suspect]
     Indication: CENTRAL NERVOUS SYSTEM LEUKAEMIA
     Dosage: TOTAL DAILY DOSE: 84 MG
     Route: 042
     Dates: start: 20071206, end: 20071206
  4. CLOFARABINE [Suspect]
     Dosage: TOTAL DAILY DOSE: 84 MG
     Route: 042
     Dates: start: 20071211, end: 20071215
  5. MELPHALAN [Suspect]
     Indication: CENTRAL NERVOUS SYSTEM LEUKAEMIA
     Dosage: TOTAL DAILY DOSE: 300 MG
     Route: 042
     Dates: start: 20071216, end: 20071216
  6. PREVACID [Concomitant]
  7. GANCICLOVIR [Concomitant]
  8. AVELOX [Concomitant]
  9. BACTRIM [Concomitant]

REACTIONS (1)
  - HEADACHE [None]
